FAERS Safety Report 24584182 (Version 1)
Quarter: 2024Q4

REPORT INFORMATION
  Report Type: Spontaneous
  Country: PT (occurrence: PT)
  Receive Date: 20241106
  Receipt Date: 20241106
  Transmission Date: 20250114
  Serious: Yes (Other)
  Sender: HIKMA
  Company Number: PT-HIKMA PHARMACEUTICALS USA INC.-PT-H14001-24-10214

PATIENT
  Age: 68 Year
  Sex: Male

DRUGS (5)
  1. GEMCITABINE [Suspect]
     Active Substance: GEMCITABINE
     Indication: Adenocarcinoma pancreas
     Dosage: UNK, 3W
     Route: 065
  2. GEMCITABINE [Suspect]
     Active Substance: GEMCITABINE
     Indication: Pancreatic carcinoma stage IV
  3. GEMCITABINE [Suspect]
     Active Substance: GEMCITABINE
     Indication: Metastases to peritoneum
  4. PACLITAXEL [Suspect]
     Active Substance: PACLITAXEL
     Indication: Adenocarcinoma pancreas
     Dosage: UNK, 3W
     Route: 065
  5. PACLITAXEL [Suspect]
     Active Substance: PACLITAXEL
     Indication: Metastases to peritoneum

REACTIONS (1)
  - Scleroderma [Recovering/Resolving]
